FAERS Safety Report 14471630 (Version 1)
Quarter: 2018Q1

REPORT INFORMATION
  Report Type: Spontaneous
  Country: US (occurrence: US)
  Receive Date: 20180131
  Receipt Date: 20180131
  Transmission Date: 20180509
  Serious: Yes (Death, Hospitalization)
  Sender: FDA-Public Use
  Company Number: US-PFIZER INC-2018041508

PATIENT
  Age: 69 Year
  Sex: Male

DRUGS (3)
  1. AMOXICILLIN. [Concomitant]
     Active Substance: AMOXICILLIN
     Indication: URINARY TRACT INFECTION
     Dosage: UNK
  2. SUNITINIB MALATE. [Suspect]
     Active Substance: SUNITINIB MALATE
     Indication: CLEAR CELL RENAL CELL CARCINOMA
     Dosage: 50 MG, DAILY AT BED TIME
     Dates: start: 201611
  3. ACETYLSALICYLIC ACID W/DIPYRIDAMOLE [Concomitant]
     Indication: CEREBROVASCULAR ACCIDENT
     Dosage: UNK (FOR OVER 5 YEARS)

REACTIONS (4)
  - Renal failure [Recovering/Resolving]
  - Hypertension [Unknown]
  - Proteinuria [Recovering/Resolving]
  - Tubulointerstitial nephritis [Recovering/Resolving]
